FAERS Safety Report 23636423 (Version 3)
Quarter: 2024Q2

REPORT INFORMATION
  Report Type: Spontaneous
  Country: JP (occurrence: None)
  Receive Date: 20240315
  Receipt Date: 20240521
  Transmission Date: 20240716
  Serious: Yes (Death, Hospitalization, Other)
  Sender: FDA-Public Use
  Company Number: 2024A061538

PATIENT
  Age: 55 Year
  Sex: Male
  Weight: 56 kg

DRUGS (15)
  1. IMJUDO [Suspect]
     Active Substance: TREMELIMUMAB\TREMELIMUMAB-ACTL
     Indication: Non-small cell lung cancer
     Route: 041
     Dates: start: 20230920, end: 20240214
  2. IMFINZI [Suspect]
     Active Substance: DURVALUMAB
     Indication: Non-small cell lung cancer
     Route: 041
     Dates: start: 20230920, end: 20240214
  3. CARBOPLATIN [Concomitant]
     Active Substance: CARBOPLATIN
     Indication: Non-small cell lung cancer
     Dates: start: 20230920, end: 20231220
  4. ALIMTA [Concomitant]
     Active Substance: PEMETREXED DISODIUM
     Indication: Non-small cell lung cancer
     Dates: start: 20230920, end: 20240214
  5. DENOSUMAB [Concomitant]
     Active Substance: DENOSUMAB
     Indication: Metastases to bone
     Route: 058
     Dates: start: 20230907, end: 20240214
  6. AZELNIDIPINE [Concomitant]
     Active Substance: AZELNIDIPINE
     Indication: Hypertension
     Dosage: AFTER BREAKFAST
     Route: 048
  7. BENZBROMARONE [Concomitant]
     Active Substance: BENZBROMARONE
     Indication: Hyperuricaemia
     Dosage: AFTER BREAKFAST
     Route: 048
  8. URSODIOL [Concomitant]
     Active Substance: URSODIOL
     Dosage: AFTER BREAKFAST, LUNCH, AND DINNER
     Route: 048
  9. LOXOPROFEN [Concomitant]
     Active Substance: LOXOPROFEN
     Indication: Pain
     Dosage: AFTER BREAKFAST, LUNCH, AND DINNER
     Route: 048
     Dates: start: 202309
  10. DECADRON [Concomitant]
     Active Substance: DEXAMETHASONE
     Indication: Pain
     Dosage: AFTER BREAKFAST AND LUNCH
     Route: 048
     Dates: start: 20240215, end: 20240219
  11. RABEPRAZOLE SODIUM [Concomitant]
     Active Substance: RABEPRAZOLE SODIUM
     Dosage: AFTER DINNER
     Route: 048
     Dates: start: 20230907
  12. PREDNISOLONE [Concomitant]
     Active Substance: PREDNISOLONE
     Indication: Immune-mediated enterocolitis
     Dosage: NUMBER OF SEPARATE DOSAGES UNKNOWN
     Route: 048
     Dates: start: 20231212
  13. TENELIA OD [Concomitant]
     Indication: Diabetes mellitus
     Dosage: NUMBER OF SEPARATE DOSAGES UNKNOWN
     Route: 048
     Dates: start: 20230907
  14. CALCIUM CARBONATE\CHOLECALCIFEROL\MAGNESIUM CARBONATE [Concomitant]
     Active Substance: CALCIUM CARBONATE\CHOLECALCIFEROL\MAGNESIUM CARBONATE
     Dosage: NUMBER OF SEPARATE DOSAGES UNKNOWN
     Route: 048
     Dates: start: 20230907
  15. VITAMINS [Concomitant]
     Active Substance: VITAMINS
     Dosage: AFTER BREAKFAST
     Route: 048
     Dates: start: 20230907

REACTIONS (5)
  - Cytokine storm [Fatal]
  - Multiple organ dysfunction syndrome [Fatal]
  - Immune-mediated enterocolitis [Recovered/Resolved]
  - Ascites [Unknown]
  - Gallbladder enlargement [Unknown]

NARRATIVE: CASE EVENT DATE: 20240301
